FAERS Safety Report 9752321 (Version 1)
Quarter: 2013Q4

REPORT INFORMATION
  Report Type: Spontaneous
  Country: US (occurrence: None)
  Receive Date: 20131212
  Receipt Date: 20131212
  Transmission Date: 20140711
  Serious: No
  Sender: FDA-Public Use
  Company Number: None

PATIENT
  Age: 21 Year
  Sex: Female
  Weight: 56.7 kg

DRUGS (4)
  1. MUCINEX D [Suspect]
     Indication: NASOPHARYNGITIS
     Dosage: 1 PILL  TWICE DAILY  TAKEN BY MOUTH??DATES OF USE: AS NEEDED
     Route: 048
  2. MUCINEX D [Suspect]
     Indication: COUGH
     Dosage: 1 PILL  TWICE DAILY  TAKEN BY MOUTH??DATES OF USE: AS NEEDED
     Route: 048
  3. MUCINEX D [Suspect]
     Indication: SINUS HEADACHE
     Dosage: 1 PILL  TWICE DAILY  TAKEN BY MOUTH??DATES OF USE: AS NEEDED
     Route: 048
  4. MUCINEX D [Suspect]
     Indication: RHINORRHOEA
     Dosage: 1 PILL  TWICE DAILY  TAKEN BY MOUTH??DATES OF USE: AS NEEDED
     Route: 048

REACTIONS (2)
  - Rash pustular [None]
  - Drug ineffective [None]
